FAERS Safety Report 6219211-8 (Version None)
Quarter: 2009Q2

REPORT INFORMATION
  Report Type: 
  Country: None (occurrence: None)
  Receive Date: 20090609
  Receipt Date: 20090604
  Transmission Date: 20091009
  Serious: Yes (Hospitalization)
  Sender: FDA-Public Use
  Company Number: US-BRISTOL-MYERS SQUIBB COMPANY-14649313

PATIENT
  Age: 51 Year
  Sex: Male
  Weight: 93 kg

DRUGS (7)
  1. TAXOL [Suspect]
     Indication: NEOPLASM
     Route: 042
     Dates: start: 20090112
  2. CARBOPLATIN [Suspect]
     Indication: NEOPLASM
     Route: 042
     Dates: start: 20090112
  3. CP-870,893 [Suspect]
     Indication: NEOPLASM
     Route: 042
     Dates: start: 20090114, end: 20090114
  4. MULTI-VITAMIN [Concomitant]
     Dates: start: 20090211
  5. PEPCID [Concomitant]
     Dates: start: 20090302
  6. TYLENOL (CAPLET) [Concomitant]
     Dates: start: 20090320
  7. PROTONIX [Concomitant]
     Dates: start: 20090506

REACTIONS (1)
  - MENTAL STATUS CHANGES [None]
